FAERS Safety Report 10076835 (Version 5)
Quarter: 2014Q2

REPORT INFORMATION
  Report Type: Spontaneous
  Country: US (occurrence: US)
  Receive Date: 20140414
  Receipt Date: 20140605
  Transmission Date: 20141212
  Serious: Yes (Death, Hospitalization, Other)
  Sender: FDA-Public Use
  Company Number: US-PFIZER INC-2014101302

PATIENT
  Age: 77 Year
  Sex: Male
  Weight: 99.77 kg

DRUGS (25)
  1. SUTENT [Suspect]
     Dosage: 50 MG, UNK
     Dates: start: 20140327, end: 20140404
  2. SUTENT [Suspect]
     Dosage: 25 MG, ALTERNATE DAY
     Dates: start: 20140411
  3. SUTENT [Suspect]
     Dosage: 50 MG, ALTERNATE DAY
     Dates: start: 20140411
  4. SUTENT [Suspect]
     Dosage: 25 MG, DAILY CONTINUOUSLY
  5. GLIPIZIDE [Concomitant]
     Dosage: UNK
  6. OMEPRAZOLE [Concomitant]
     Dosage: UNK
  7. CYMBALTA [Concomitant]
     Dosage: UNK
  8. ASPIRIN [Concomitant]
     Dosage: UNK
  9. LABETALOL [Concomitant]
     Dosage: UNK
  10. ENALAPRIL [Concomitant]
     Dosage: UNK
  11. FISH OIL [Concomitant]
     Dosage: UNK
  12. VITAMIN B [Concomitant]
     Dosage: UNK
  13. COLACE [Concomitant]
     Dosage: UNK
  14. FLOMAX [Concomitant]
     Dosage: UNK
  15. LORAZEPAM [Concomitant]
     Dosage: UNK
  16. FINASTERIDE [Concomitant]
     Dosage: UNK
  17. LIPITOR [Concomitant]
     Dosage: UNK
  18. PERCOCET [Concomitant]
     Dosage: UNK
  19. DILAUDID [Concomitant]
     Dosage: UNK
  20. LIDODERM PATCH [Concomitant]
     Dosage: UNK
  21. DEXAMETHASONE [Concomitant]
     Dosage: UNK
  22. AMLODIPINE [Concomitant]
     Dosage: UNK
  23. ISOSORBIDE [Concomitant]
     Dosage: UNK
  24. INSULIN [Concomitant]
     Dosage: UNK
  25. ANDROGEL [Concomitant]
     Dosage: UNK

REACTIONS (14)
  - Death [Fatal]
  - Urinary incontinence [Unknown]
  - Asthenia [Not Recovered/Not Resolved]
  - Fatigue [Not Recovered/Not Resolved]
  - Pain [Not Recovered/Not Resolved]
  - Blood glucose decreased [Recovered/Resolved]
  - Oral pain [Unknown]
  - Peripheral swelling [Unknown]
  - Thyroid disorder [Unknown]
  - Blood glucose increased [Recovering/Resolving]
  - Haemorrhage [Unknown]
  - Hypertension [Recovering/Resolving]
  - Epistaxis [Recovered/Resolved]
  - White blood cell count decreased [Unknown]
